FAERS Safety Report 19712458 (Version 1)
Quarter: 2021Q3

REPORT INFORMATION
  Report Type: Spontaneous
  Country: US (occurrence: US)
  Receive Date: 20210816
  Receipt Date: 20210816
  Transmission Date: 20211014
  Serious: No
  Sender: FDA-Public Use
  Company Number: US-KALA PHARAMACEUTICALS-2021KLA00064

PATIENT
  Age: 61 Year
  Sex: Female
  Weight: 70.3 kg

DRUGS (2)
  1. EYSUVIS [Suspect]
     Active Substance: LOTEPREDNOL ETABONATE
     Indication: DRY EYE
     Dosage: 1 DROP, 2X/DAY IN BOTH EYES
     Route: 047
     Dates: start: 20210624
  2. REFRESH PLUS [Suspect]
     Active Substance: CARBOXYMETHYLCELLULOSE SODIUM
     Indication: DRY EYE
     Dosage: 1 DROP, 2X/DAY IN BOTH EYES AS NEEDED
     Route: 047

REACTIONS (4)
  - Product administration error [Unknown]
  - Instillation site irritation [Recovered/Resolved]
  - Lacrimation increased [Recovered/Resolved]
  - Off label use [Not Recovered/Not Resolved]

NARRATIVE: CASE EVENT DATE: 202106
